FAERS Safety Report 7546151-4 (Version None)
Quarter: 2011Q2

REPORT INFORMATION
  Report Type: 
  Country: None (occurrence: None)
  Receive Date: 20110614
  Receipt Date: 20031021
  Transmission Date: 20111010
  Serious: Yes (Death)
  Sender: FDA-Public Use
  Company Number: PHHO2003CA13415

PATIENT
  Sex: Male

DRUGS (1)
  1. CLOZAPINE [Suspect]
     Indication: SCHIZOPHRENIA
     Dosage: NOT REPORTED
     Route: 048
     Dates: start: 20030924

REACTIONS (2)
  - ASPHYXIA [None]
  - COMPLETED SUICIDE [None]
